FAERS Safety Report 9426757 (Version 1)
Quarter: 2013Q3

REPORT INFORMATION
  Report Type: Spontaneous
  Country: US (occurrence: US)
  Receive Date: 20130730
  Receipt Date: 20130730
  Transmission Date: 20140515
  Serious: Yes (Other)
  Sender: FDA-Public Use
  Company Number: US-SANOFI-AVENTIS-2013SA004868

PATIENT
  Sex: Female

DRUGS (1)
  1. ZOLPIDEM TARTRATE [Suspect]
     Indication: CIRCADIAN RHYTHM SLEEP DISORDER
     Dosage: SHE TOOK 8-10 TABLETS DAILY OVER 2 YEARS.

REACTIONS (3)
  - Depression [Unknown]
  - Drug dependence [Unknown]
  - Anxiety [Unknown]
